FAERS Safety Report 7590116-3 (Version None)
Quarter: 2011Q3

REPORT INFORMATION
  Report Type: 
  Country: None (occurrence: None)
  Receive Date: 20110705
  Receipt Date: 20110627
  Transmission Date: 20111222
  Serious: Yes (Other)
  Sender: FDA-Public Use
  Company Number: B0729803A

PATIENT
  Age: 82 Year
  Sex: Female

DRUGS (2)
  1. VENTOLIN HFA [Suspect]
     Route: 065
  2. FLUTICASONE PROPIONATE [Suspect]
     Route: 065

REACTIONS (2)
  - ASTHMA [None]
  - DRUG INEFFECTIVE [None]
